FAERS Safety Report 8804856 (Version 2)
Quarter: 2015Q2

REPORT INFORMATION
  Report Type: Report from Study
  Country: US (occurrence: US)
  Receive Date: 20120924
  Receipt Date: 20150616
  Transmission Date: 20150821
  Serious: Yes (Death)
  Sender: FDA-Public Use
  Company Number: US-ROCHE-1124238

PATIENT
  Sex: Female

DRUGS (7)
  1. AVASTIN [Suspect]
     Active Substance: BEVACIZUMAB
     Indication: OVARIAN CANCER
     Route: 042
     Dates: start: 20050602
  2. TAXOL [Concomitant]
     Active Substance: PACLITAXEL
     Route: 042
  3. ANZEMET [Concomitant]
     Active Substance: DOLASETRON MESYLATE
     Route: 042
  4. TAGAMET [Concomitant]
     Active Substance: CIMETIDINE
     Route: 042
  5. GEMZAR [Concomitant]
     Active Substance: GEMCITABINE HYDROCHLORIDE
  6. DECADRON [Concomitant]
     Active Substance: DEXAMETHASONE
     Route: 042
  7. PROCRIT [Concomitant]
     Active Substance: ERYTHROPOIETIN
     Route: 058

REACTIONS (2)
  - Death [Fatal]
  - Off label use [Unknown]
